FAERS Safety Report 4994807-X (Version None)
Quarter: 2006Q2

REPORT INFORMATION
  Report Type: 
  Country: None (occurrence: None)
  Receive Date: 20060503
  Receipt Date: 20060420
  Transmission Date: 20061013
  Serious: Yes (Other)
  Sender: FDA-Public Use
  Company Number: 2006031655

PATIENT
  Age: 68 Year
  Sex: Female
  Weight: 72.5755 kg

DRUGS (8)
  1. LYRICA [Suspect]
     Indication: NEURALGIA
     Dosage: 150 MG (50 MG, 3 IN 1 D),ORAL
     Route: 048
     Dates: start: 20060201
  2. CARDIZEM CD [Concomitant]
  3. LIPITOR [Concomitant]
  4. NEXIUM [Concomitant]
  5. DESYREL (TRAZOSONE HYDROCHLORIDE) [Concomitant]
  6. HYOSCYAMINE (HYDOSCYAMINE) [Concomitant]
  7. WARFARIN SODIUM [Concomitant]
  8. HYDREA [Concomitant]

REACTIONS (6)
  - CONDITION AGGRAVATED [None]
  - COORDINATION ABNORMAL [None]
  - DRUG INEFFECTIVE [None]
  - FEELING DRUNK [None]
  - NEUROPATHY [None]
  - VISION BLURRED [None]
